FAERS Safety Report 13468985 (Version 2)
Quarter: 2017Q4

REPORT INFORMATION
  Report Type: Report from Study
  Country: FR (occurrence: FR)
  Receive Date: 20170421
  Receipt Date: 20171129
  Transmission Date: 20180320
  Serious: Yes (Hospitalization, Other)
  Sender: FDA-Public Use
  Company Number: FR-PFIZER INC-2017157485

PATIENT
  Age: 37 Year
  Sex: Female
  Weight: 80 kg

DRUGS (10)
  1. AXITINIB [Suspect]
     Active Substance: AXITINIB
     Indication: METASTATIC RENAL CELL CARCINOMA
     Dosage: 5 MG, 2X/DAY
     Route: 048
     Dates: start: 201605, end: 201606
  2. AXITINIB [Suspect]
     Active Substance: AXITINIB
     Dosage: 3 MG, 2X/DAY 5 DAYS PER WEEK
     Route: 048
     Dates: start: 201607, end: 201702
  3. LEVOTHYROX [Concomitant]
     Active Substance: LEVOTHYROXINE
     Indication: BLOOD THYROID STIMULATING HORMONE INCREASED
     Dosage: UNK
     Dates: start: 201503
  4. SMECTA [Concomitant]
     Active Substance: MONTMORILLONITE
     Indication: DIARRHOEA
     Dosage: UNK
     Dates: start: 201506
  5. PROCTOLOG /01026901/ [Concomitant]
     Indication: ANAL INFLAMMATION
     Dosage: UNK
     Dates: start: 201508
  6. TRONOTHANE [Concomitant]
     Active Substance: PRAMOXINE
     Indication: ANAL INFLAMMATION
     Dosage: UNK
     Dates: start: 201508
  7. TITANOREINE /02208801/ [Concomitant]
     Indication: HAEMORRHOIDS
     Dosage: UNK
     Dates: start: 201502
  8. NEO-CODION /01425101/ [Concomitant]
     Active Substance: CODEINE\GRINDELIA HIRSUTULA WHOLE\SULFOGAIACOL
     Indication: COUGH
     Dosage: UNK
     Dates: start: 201607
  9. AXITINIB [Suspect]
     Active Substance: AXITINIB
     Dosage: 5 MG, 2X/DAY EVERY SECOND DAY
     Route: 048
     Dates: start: 201606, end: 201607
  10. TIORFAN [Concomitant]
     Active Substance: RACECADOTRIL
     Indication: DIARRHOEA
     Dosage: UNK
     Dates: start: 201605

REACTIONS (4)
  - Stomatitis [Recovered/Resolved]
  - Cough [Recovered/Resolved]
  - Ischaemic stroke [Recovered/Resolved]
  - Diarrhoea [Recovered/Resolved]

NARRATIVE: CASE EVENT DATE: 201605
